FAERS Safety Report 12075866 (Version 2)
Quarter: 2016Q1

REPORT INFORMATION
  Report Type: Spontaneous
  Country: US (occurrence: US)
  Receive Date: 20160214
  Receipt Date: 20160323
  Transmission Date: 20160526
  Serious: No
  Sender: FDA-Public Use
  Company Number: US-009507513-1602USA002621

PATIENT
  Age: 17 Year
  Sex: Female
  Weight: 67.57 kg

DRUGS (2)
  1. NEXPLANON [Suspect]
     Active Substance: ETONOGESTREL
     Dosage: UNK
     Route: 059
     Dates: start: 20160202
  2. NEXPLANON [Suspect]
     Active Substance: ETONOGESTREL
     Indication: CONTRACEPTION
     Dosage: 68 MG 1 STANDARD PACKAGE PREFLAPP OF 1
     Route: 059
     Dates: start: 20150402, end: 20160202

REACTIONS (3)
  - Device kink [Recovered/Resolved]
  - Device breakage [Recovered/Resolved]
  - Haemorrhage [Unknown]

NARRATIVE: CASE EVENT DATE: 201508
